FAERS Safety Report 4939991-9 (Version None)
Quarter: 2006Q1

REPORT INFORMATION
  Report Type: 
  Country: None (occurrence: None)
  Receive Date: 20060310
  Receipt Date: 20060228
  Transmission Date: 20060701
  Serious: Yes (Death)
  Sender: FDA-Public Use
  Company Number: US-BRISTOL-MYERS SQUIBB COMPANY-13298047

PATIENT
  Sex: Male

DRUGS (4)
  1. ABILIFY [Suspect]
     Indication: BIPOLAR I DISORDER
  2. KLONOPIN [Concomitant]
  3. LITHIUM [Concomitant]
  4. COGENTIN [Concomitant]

REACTIONS (1)
  - SUDDEN DEATH [None]
